FAERS Safety Report 4786292-8 (Version None)
Quarter: 2005Q3

REPORT INFORMATION
  Report Type: 
  Country: None (occurrence: None)
  Receive Date: 20050914
  Receipt Date: 20050302
  Transmission Date: 20060218
  Serious: Yes (Death)
  Sender: FDA-Public Use
  Company Number: 163-20785-05030056

PATIENT
  Age: 71 Year
  Sex: Female

DRUGS (1)
  1. THALOMID [Suspect]
     Indication: MULTIPLE MYELOMA
     Dosage: 100 MG, DAILY, ORAL
     Route: 048
     Dates: start: 20021113, end: 20050201

REACTIONS (5)
  - BRONCHIAL OBSTRUCTION [None]
  - DEATH [None]
  - DISEASE PROGRESSION [None]
  - NON-SMALL CELL LUNG CANCER [None]
  - RESPIRATORY FAILURE [None]
